FAERS Safety Report 24730308 (Version 3)
Quarter: 2024Q4

REPORT INFORMATION
  Report Type: Spontaneous
  Country: BR (occurrence: BR)
  Receive Date: 20241213
  Receipt Date: 20241227
  Transmission Date: 20250115
  Serious: Yes (Other)
  Sender: MERCK
  Company Number: BR-009507513-2412BRA003733

PATIENT
  Age: 61 Year
  Sex: Male
  Weight: 93 kg

DRUGS (6)
  1. JANUMET [Suspect]
     Active Substance: METFORMIN HYDROCHLORIDE\SITAGLIPTIN PHOSPHATE
     Indication: Diabetes mellitus
     Dosage: STRENGTH: 50/850 MG
     Route: 048
     Dates: start: 2022, end: 202411
  2. JANUMET [Suspect]
     Active Substance: METFORMIN HYDROCHLORIDE\SITAGLIPTIN PHOSPHATE
     Dosage: 2 PILLS A DAY, ONE IN THE MORNING AND ONE AT NIGHT; STRENGTH: 50/1000MG
     Route: 048
     Dates: start: 202411, end: 202412
  3. JANUMET XR [Suspect]
     Active Substance: METFORMIN HYDROCHLORIDE\SITAGLIPTIN PHOSPHATE
     Indication: Diabetes mellitus
     Dosage: STRENGTH: 50/1000 MG
     Route: 048
     Dates: start: 202412
  4. DAPAGLIFLOZIN [Concomitant]
     Active Substance: DAPAGLIFLOZIN
     Indication: Prophylaxis
     Dosage: UNK
  5. ALLOPURINOL [Concomitant]
     Active Substance: ALLOPURINOL
     Indication: Blood uric acid abnormal
     Dosage: UNK
  6. CLAZI XR [Concomitant]
     Indication: Diabetes mellitus
     Dosage: UNK
     Dates: start: 2022, end: 20241005

REACTIONS (7)
  - Diabetes mellitus inadequate control [Unknown]
  - Blood glucose fluctuation [Unknown]
  - Blood uric acid abnormal [Unknown]
  - Blood pressure abnormal [Unknown]
  - Prescription drug used without a prescription [Unknown]
  - Product dispensing error [Unknown]
  - Wrong product administered [Unknown]

NARRATIVE: CASE EVENT DATE: 20220101
